FAERS Safety Report 12121407 (Version 2)
Quarter: 2016Q1

REPORT INFORMATION
  Report Type: Spontaneous
  Country: US (occurrence: US)
  Receive Date: 20160226
  Receipt Date: 20160301
  Transmission Date: 20160526
  Serious: No
  Sender: FDA-Public Use
  Company Number: US-BAYER-2016-031928

PATIENT
  Age: 90 Year
  Sex: Female
  Weight: 58.96 kg

DRUGS (1)
  1. ALKA-SELTZER PLUS NIGHT COLD MEDICINE [Suspect]
     Active Substance: ASPIRIN\DEXTROMETHORPHAN HYDROBROMIDE\DOXYLAMINE SUCCINATE\PHENYLEPHRINE BITARTRATE
     Indication: NASOPHARYNGITIS
     Dosage: 2 DF, PRN (HAS BEEN TAKING FOR 7 DAYS)
     Route: 048
     Dates: start: 20160211

REACTIONS (3)
  - Drug ineffective [None]
  - Expired product administered [None]
  - Contraindicated drug administered [None]
